FAERS Safety Report 6399709-2 (Version None)
Quarter: 2009Q4

REPORT INFORMATION
  Report Type: 
  Country: None (occurrence: None)
  Receive Date: 20091014
  Receipt Date: 20091008
  Transmission Date: 20100525
  Serious: Yes (Disabling, Other)
  Sender: FDA-Public Use
  Company Number: GB-ROCHE-661392

PATIENT
  Age: 43 Year
  Sex: Female

DRUGS (1)
  1. TAMIFLU [Suspect]
     Route: 065
     Dates: start: 20090709, end: 20090714

REACTIONS (2)
  - ERYTHEMA NODOSUM [None]
  - GAIT DISTURBANCE [None]
